FAERS Safety Report 14046303 (Version 24)
Quarter: 2020Q1

REPORT INFORMATION
  Report Type: Report from Study
  Country: US (occurrence: US)
  Receive Date: 20171005
  Receipt Date: 20200330
  Transmission Date: 20200409
  Serious: Yes (Other)
  Sender: FDA-Public Use
  Company Number: US-TESARO, INC-US-2017TSO02047

PATIENT
  Age: 61 Year
  Sex: Female
  Weight: 37.91 kg

DRUGS (14)
  1. NIRAPARIB [Suspect]
     Active Substance: NIRAPARIB
     Indication: OVARIAN CANCER
     Dosage: 300 MG, QD
     Route: 048
     Dates: start: 20170703
  2. NIRAPARIB [Suspect]
     Active Substance: NIRAPARIB
     Dosage: 200 MG, QD
     Route: 048
     Dates: end: 20170925
  3. NIRAPARIB [Suspect]
     Active Substance: NIRAPARIB
     Dosage: 100 MG, QD
     Route: 048
  4. NIRAPARIB [Suspect]
     Active Substance: NIRAPARIB
     Dosage: UNK
     Route: 048
     Dates: start: 20180115
  5. NIRAPARIB [Suspect]
     Active Substance: NIRAPARIB
     Dosage: 100 MG, QD
     Route: 048
  6. NIRAPARIB [Suspect]
     Active Substance: NIRAPARIB
     Dosage: 100 MG, QAM WITHOUT FOOD
     Route: 048
     Dates: start: 20190127
  7. NIRAPARIB [Suspect]
     Active Substance: NIRAPARIB
     Dosage: 100 MG, QAM WITHOUT FOOD
     Route: 048
  8. TYLENOL [Concomitant]
     Active Substance: ACETAMINOPHEN
     Indication: HEADACHE
     Dosage: UNK
  9. NIRAPARIB [Suspect]
     Active Substance: NIRAPARIB
     Dosage: 100 MG, QAM WITHOUT FOOD
     Route: 048
  10. LORAZEPAM. [Concomitant]
     Active Substance: LORAZEPAM
     Indication: INSOMNIA
     Dosage: UNK
  11. NIRAPARIB [Suspect]
     Active Substance: NIRAPARIB
     Dosage: 300 MG, QD
     Route: 048
  12. NIRAPARIB [Suspect]
     Active Substance: NIRAPARIB
     Dosage: 100 MG, QD
     Route: 048
  13. NIRAPARIB [Suspect]
     Active Substance: NIRAPARIB
     Dosage: 100 MG, QD
     Route: 048
  14. NIRAPARIB [Suspect]
     Active Substance: NIRAPARIB
     Dosage: 100 MG, QD

REACTIONS (72)
  - Compression fracture [Recovering/Resolving]
  - Constipation [Not Recovered/Not Resolved]
  - Hyperhidrosis [Not Recovered/Not Resolved]
  - Heart rate irregular [Not Recovered/Not Resolved]
  - Unevaluable event [Not Recovered/Not Resolved]
  - Contusion [Unknown]
  - Carbohydrate antigen 125 increased [Unknown]
  - Abdominal discomfort [Not Recovered/Not Resolved]
  - Depressed mood [Not Recovered/Not Resolved]
  - Lumbar vertebral fracture [Not Recovered/Not Resolved]
  - Abdominal rigidity [Not Recovered/Not Resolved]
  - Sluggishness [Not Recovered/Not Resolved]
  - Pain [Recovering/Resolving]
  - Pyrexia [Recovering/Resolving]
  - Hypoaesthesia [Unknown]
  - Nervousness [Unknown]
  - Diarrhoea [Recovered/Resolved]
  - Blood pressure increased [Unknown]
  - Tooth disorder [Not Recovered/Not Resolved]
  - Influenza [Not Recovered/Not Resolved]
  - Weight increased [Not Recovered/Not Resolved]
  - Bone density decreased [Unknown]
  - Oedema peripheral [Not Recovered/Not Resolved]
  - Dysphagia [Unknown]
  - Contrast media reaction [Unknown]
  - Osteopenia [Not Recovered/Not Resolved]
  - Oropharyngeal discomfort [Unknown]
  - Gastrooesophageal reflux disease [Recovered/Resolved]
  - Fall [Recovered/Resolved]
  - Faeces discoloured [Unknown]
  - Blood phosphorus abnormal [Unknown]
  - Dysmenorrhoea [Recovered/Resolved]
  - Abdominal distension [Not Recovered/Not Resolved]
  - Asthenia [Not Recovered/Not Resolved]
  - Urinary tract infection [Unknown]
  - Product dose omission [Unknown]
  - Adverse drug reaction [Not Recovered/Not Resolved]
  - Gastritis [Not Recovered/Not Resolved]
  - Tooth extraction [Unknown]
  - Nausea [Not Recovered/Not Resolved]
  - Dizziness [Unknown]
  - Ascites [Not Recovered/Not Resolved]
  - Loss of consciousness [Recovered/Resolved]
  - Cardiomegaly [Not Recovered/Not Resolved]
  - Blood glucose increased [Not Recovered/Not Resolved]
  - Emotional poverty [Not Recovered/Not Resolved]
  - Chills [Recovering/Resolving]
  - Drug hypersensitivity [Not Recovered/Not Resolved]
  - Heart rate increased [Not Recovered/Not Resolved]
  - Decreased appetite [Recovering/Resolving]
  - Peripheral swelling [Not Recovered/Not Resolved]
  - Abdominal pain [Not Recovered/Not Resolved]
  - Myalgia [Recovering/Resolving]
  - Hernia [Recovered/Resolved]
  - Platelet count decreased [Not Recovered/Not Resolved]
  - Malaise [Not Recovered/Not Resolved]
  - Sinusitis [Not Recovered/Not Resolved]
  - Amnesia [Not Recovered/Not Resolved]
  - Pain in jaw [Unknown]
  - Mood altered [Unknown]
  - Adverse event [Unknown]
  - Abdominal pain upper [Not Recovered/Not Resolved]
  - Arthralgia [Unknown]
  - Abdominal adhesions [Not Recovered/Not Resolved]
  - Gastric disorder [Not Recovered/Not Resolved]
  - Nasal congestion [Recovering/Resolving]
  - Fall [Unknown]
  - Feeling abnormal [Not Recovered/Not Resolved]
  - Vitamin D decreased [Not Recovered/Not Resolved]
  - Drug intolerance [Not Recovered/Not Resolved]
  - Fatigue [Not Recovered/Not Resolved]
  - Dyspnoea [Not Recovered/Not Resolved]

NARRATIVE: CASE EVENT DATE: 20171225
